FAERS Safety Report 15533810 (Version 1)
Quarter: 2018Q4

REPORT INFORMATION
  Report Type: Report from Study
  Country: GR (occurrence: GR)
  Receive Date: 20181019
  Receipt Date: 20181019
  Transmission Date: 20190205
  Serious: Yes (Other)
  Sender: FDA-Public Use
  Company Number: GR-CURIUM PHARMACEUTICALS-201300254

PATIENT

DRUGS (1)
  1. SODIUM IODIDE I 131 [Suspect]
     Active Substance: SODIUM IODIDE I-131
     Indication: BASEDOW^S DISEASE
     Route: 065

REACTIONS (1)
  - Endocrine ophthalmopathy [Unknown]
